FAERS Safety Report 10571309 (Version 2)
Quarter: 2016Q1

REPORT INFORMATION
  Report Type: Spontaneous
  Country: US (occurrence: US)
  Receive Date: 20141107
  Receipt Date: 20160301
  Transmission Date: 20160525
  Serious: Yes (Other)
  Sender: FDA-Public Use
  Company Number: US-BAYER-2014-162695

PATIENT
  Age: 40 Year
  Sex: Female

DRUGS (8)
  1. FLEXERIL [Concomitant]
     Active Substance: CYCLOBENZAPRINE HYDROCHLORIDE
  2. MIRENA [Suspect]
     Active Substance: LEVONORGESTREL
     Indication: MENORRHAGIA
     Dosage: 20 MCG/24HR, CONT
     Route: 015
     Dates: start: 20110609, end: 20130214
  3. TYLENOL WITH CODEINE [Concomitant]
     Active Substance: ACETAMINOPHEN\CODEINE PHOSPHATE
  4. DIFLUCAN [Concomitant]
     Active Substance: FLUCONAZOLE
  5. COLECALCIFEROL [Concomitant]
     Active Substance: CHOLECALCIFEROL
  6. CIPRO [Concomitant]
     Active Substance: CIPROFLOXACIN HYDROCHLORIDE
  7. MONISTAT [Concomitant]
     Active Substance: MICONAZOLE NITRATE
  8. SYNTHROID [Concomitant]
     Active Substance: LEVOTHYROXINE SODIUM
     Indication: HYPOTHYROIDISM
     Dosage: UNK
     Dates: start: 2010

REACTIONS (13)
  - Uterine perforation [None]
  - Device issue [None]
  - Medical device pain [None]
  - Anxiety [None]
  - Scar [None]
  - Pain [None]
  - Medical device discomfort [None]
  - Drug ineffective [None]
  - Procedural pain [None]
  - Device failure [None]
  - Injury [None]
  - Emotional distress [None]
  - Depression [None]

NARRATIVE: CASE EVENT DATE: 201302
